FAERS Safety Report 8184454-3 (Version None)
Quarter: 2012Q1

REPORT INFORMATION
  Report Type: 
  Country: None (occurrence: None)
  Receive Date: 20120301
  Receipt Date: 20120215
  Transmission Date: 20120608
  Serious: Yes (Other)
  Sender: FDA-Public Use
  Company Number: 20120068

PATIENT
  Age: 40 Year
  Sex: Male
  Weight: 99.7913 kg

DRUGS (12)
  1. VITAMIN B-12 [Concomitant]
  2. VITAMIN B COMPLEX CAP [Concomitant]
  3. CYANOCOBALAMIN INJECTION, USP ) (0031-25)(CYANOCOBALAMIN) [Concomitant]
  4. MAGNESIUM CHLORIDE [Concomitant]
  5. ASCORBIC ACID [Concomitant]
  6. VITAMIN B5 [Concomitant]
  7. VITAMIN B6 [Concomitant]
  8. CALCIUM GLUCONATE INJ [Suspect]
     Indication: FATIGUE
     Dosage: 2 ML OVER 90 MINUTES, INTRAVENOUS DRIP
     Route: 041
     Dates: start: 20120207, end: 20120207
  9. GABITRIL [Concomitant]
  10. STERILE WATER FOR INJECTION [Concomitant]
  11. TRACE ELEMENT-ZINC CHLORIDE [Suspect]
     Indication: FATIGUE
     Dosage: 1.0 MG/ML, OVER 90 MINUTES INTRAVENOUS DRIP -INTRAVENOUS DRIP
     Route: 041
     Dates: start: 20120207, end: 20120207
  12. LEXAPRO [Concomitant]

REACTIONS (9)
  - HYPERHIDROSIS [None]
  - CHILLS [None]
  - PULSE ABNORMAL [None]
  - DRUG ADMINISTRATION ERROR [None]
  - HEART RATE INCREASED [None]
  - OFF LABEL USE [None]
  - PALLOR [None]
  - VOMITING [None]
  - PYREXIA [None]
